FAERS Safety Report 16230423 (Version 3)
Quarter: 2019Q2

REPORT INFORMATION
  Report Type: Spontaneous
  Country: US (occurrence: US)
  Receive Date: 20190423
  Receipt Date: 20190430
  Transmission Date: 20190711
  Serious: Yes (Death, Other)
  Sender: FDA-Public Use
  Company Number: US-PFIZER INC-2019166217

PATIENT
  Sex: Female

DRUGS (2)
  1. NIFEDIPINE. [Suspect]
     Active Substance: NIFEDIPINE
     Indication: HYPERTENSION
     Dosage: UNK
  2. TERBUTALINE [Concomitant]
     Active Substance: TERBUTALINE
     Indication: TOCOLYSIS
     Dosage: UNK

REACTIONS (6)
  - Foetal death [Fatal]
  - Haemorrhage [Unknown]
  - Eclampsia [Unknown]
  - Seizure [Unknown]
  - Premature separation of placenta [Unknown]
  - Off label use [Unknown]
